FAERS Safety Report 11505885 (Version 1)
Quarter: 2015Q3

REPORT INFORMATION
  Report Type: Spontaneous
  Country: US (occurrence: US)
  Receive Date: 20150915
  Receipt Date: 20150915
  Transmission Date: 20151125
  Serious: No
  Sender: FDA-Public Use
  Company Number: US-ROCHE-776317

PATIENT
  Age: 69 Year
  Sex: Male

DRUGS (2)
  1. RIBASPHERE [Suspect]
     Active Substance: RIBAVIRIN
     Indication: PRODUCT USED FOR UNKNOWN INDICATION
     Route: 065
     Dates: start: 20110404, end: 20110507
  2. PEGASYS [Suspect]
     Active Substance: PEGINTERFERON ALFA-2A
     Indication: PRODUCT USED FOR UNKNOWN INDICATION
     Dosage: PRE-FILLED SYRINGE
     Route: 065
     Dates: start: 20110404, end: 20110507

REACTIONS (4)
  - Influenza like illness [Unknown]
  - Vision blurred [Not Recovered/Not Resolved]
  - Asthenia [Not Recovered/Not Resolved]
  - Labyrinthitis [Not Recovered/Not Resolved]

NARRATIVE: CASE EVENT DATE: 20110404
